FAERS Safety Report 9009279 (Version 2)
Quarter: 2013Q1

REPORT INFORMATION
  Report Type: Report from Study
  Country: DE (occurrence: DE)
  Receive Date: 20130111
  Receipt Date: 20130122
  Transmission Date: 20140127
  Serious: Yes (Hospitalization)
  Sender: FDA-Public Use
  Company Number: DE-GLAXOSMITHKLINE-B0857859A

PATIENT
  Age: 27 Year
  Sex: Female
  Weight: 68 kg

DRUGS (4)
  1. LAPATINIB [Suspect]
     Indication: BREAST CANCER
     Dosage: 500MG PER DAY
     Route: 048
     Dates: start: 20120820
  2. DOXORUBICIN HCL LIPOSOME [Suspect]
     Indication: BREAST CANCER
     Dosage: 26MG WEEKLY
     Route: 042
     Dates: start: 20120820
  3. PACLITAXEL [Suspect]
     Indication: BREAST CANCER
     Dosage: 100MG WEEKLY
     Route: 042
     Dates: start: 20120820
  4. TRASTUZUMAB [Suspect]
     Indication: BREAST CANCER
     Dosage: 380MG EVERY 3 WEEKS
     Route: 042
     Dates: start: 20120820

REACTIONS (1)
  - Pyrexia [Recovered/Resolved]
